FAERS Safety Report 8772367 (Version 4)
Quarter: 2014Q2

REPORT INFORMATION
  Report Type: Report from Study
  Country: CA (occurrence: CA)
  Receive Date: 20120905
  Receipt Date: 20140630
  Transmission Date: 20141212
  Serious: Yes (Life-Threatening, Other)
  Sender: FDA-Public Use
  Company Number: PHHY2011CA77222

PATIENT
  Age: 75 Year
  Sex: Female

DRUGS (6)
  1. ACLASTA [Suspect]
     Indication: OSTEOPOROSIS
     Dosage: 5 MG/100ML
     Route: 042
     Dates: start: 20110821
  2. ACLASTA [Suspect]
     Indication: OSTEITIS DEFORMANS
     Dosage: 5 MG/100ML
     Route: 042
     Dates: start: 20120821
  3. ACLASTA [Suspect]
     Dosage: 5 MG/100ML
     Route: 042
     Dates: start: 20130620, end: 20130620
  4. CALCIUM [Concomitant]
     Dosage: 500 MG, UNK
  5. VITAMIN D [Concomitant]
     Dosage: 400 UKN, BID
  6. PREVACID [Concomitant]
     Dosage: UNK

REACTIONS (8)
  - Pancreatic carcinoma [Not Recovered/Not Resolved]
  - Adenocarcinoma [Not Recovered/Not Resolved]
  - Abdominal pain upper [Not Recovered/Not Resolved]
  - Terminal state [Not Recovered/Not Resolved]
  - Renal pain [Not Recovered/Not Resolved]
  - Movement disorder [Not Recovered/Not Resolved]
  - Inappropriate schedule of drug administration [Unknown]
  - Headache [Not Recovered/Not Resolved]
